FAERS Safety Report 25763234 (Version 1)
Quarter: 2025Q3

REPORT INFORMATION
  Report Type: Spontaneous
  Country: EU (occurrence: EU)
  Receive Date: 20250905
  Receipt Date: 20250905
  Transmission Date: 20251021
  Serious: Yes (Hospitalization)
  Sender: ALEXION PHARMACEUTICALS
  Company Number: EU-ASTRAZENECA-202508GLO026068ES

PATIENT
  Age: 71 Year
  Sex: Male
  Weight: 59.4 kg

DRUGS (12)
  1. OMEPRAZOLE [Suspect]
     Active Substance: OMEPRAZOLE
     Indication: Gastritis
     Dosage: 40 MILLIGRAM, QD
     Dates: start: 20240426, end: 20250309
  2. OMEPRAZOLE [Suspect]
     Active Substance: OMEPRAZOLE
     Dosage: 120 MILLIGRAM, QD
     Dates: start: 20250311, end: 20250313
  3. OMEPRAZOLE [Suspect]
     Active Substance: OMEPRAZOLE
     Dosage: 80 MILLIGRAM, QD
     Dates: start: 20250314, end: 20250330
  4. HYDROXYZINE [Concomitant]
     Active Substance: HYDROXYZINE HYDROCHLORIDE
  5. ALMAGATE [Concomitant]
     Active Substance: ALMAGATE
  6. ACTRAPID [Concomitant]
     Active Substance: INSULIN HUMAN
  7. Vital peptide [Concomitant]
  8. AMLODIPINE [Concomitant]
     Active Substance: AMLODIPINE BESYLATE
  9. ACETAMINOPHEN [Concomitant]
     Active Substance: ACETAMINOPHEN
     Route: 065
  10. METAMIZOLE [Concomitant]
     Active Substance: METAMIZOLE
  11. VANCOMYCIN [Concomitant]
     Active Substance: VANCOMYCIN
     Route: 065
  12. MEROPENEM [Concomitant]
     Active Substance: MEROPENEM
     Route: 065

REACTIONS (1)
  - Inappropriate antidiuretic hormone secretion [Recovered/Resolved]

NARRATIVE: CASE EVENT DATE: 20250317
